FAERS Safety Report 5551512-9 (Version None)
Quarter: 2007Q4

REPORT INFORMATION
  Report Type: 
  Country: None (occurrence: None)
  Receive Date: 20071129
  Receipt Date: 20070529
  Transmission Date: 20080405
  Serious: Yes (Other)
  Sender: FDA-Public Use
  Company Number: US200702003007

PATIENT
  Age: 16 Year
  Sex: Female

DRUGS (3)
  1. ZYPREXA [Suspect]
     Indication: BIPOLAR DISORDER
     Dosage: 20  MG
     Dates: start: 20061120, end: 20061227
  2. ASCORBIC ACID [Concomitant]
  3. VITAMIN E (HERBAL OIL NOS) [Concomitant]

REACTIONS (4)
  - DYSKINESIA [None]
  - DYSTONIA [None]
  - THYROXINE INCREASED [None]
  - TREMOR [None]
